FAERS Safety Report 9570745 (Version 2)
Quarter: 2013Q4

REPORT INFORMATION
  Report Type: Spontaneous
  Country: CA (occurrence: CA)
  Receive Date: 20131001
  Receipt Date: 20131007
  Transmission Date: 20140711
  Serious: No
  Sender: FDA-Public Use
  Company Number: CA-ROCHE-1282784

PATIENT
  Age: 64 Year
  Sex: Male

DRUGS (3)
  1. XOLAIR [Suspect]
     Indication: ASTHMA
     Route: 065
     Dates: start: 20070110
  2. XOLAIR [Suspect]
     Route: 065
     Dates: start: 20120131
  3. SYMBICORT [Concomitant]

REACTIONS (5)
  - Sinusitis [Unknown]
  - Lower respiratory tract infection [Recovered/Resolved]
  - Sinus congestion [Unknown]
  - Nasopharyngitis [Recovering/Resolving]
  - Syncope [Unknown]
